FAERS Safety Report 6704668-6 (Version None)
Quarter: 2010Q2

REPORT INFORMATION
  Report Type: 
  Country: None (occurrence: None)
  Receive Date: 20100430
  Receipt Date: 20100416
  Transmission Date: 20101027
  Serious: Yes (Death)
  Sender: FDA-Public Use
  Company Number: JP-GENENTECH-297426

PATIENT
  Age: 64 Year
  Sex: Male
  Weight: 52 kg

DRUGS (14)
  1. OMALIZUMAB [Suspect]
     Indication: ASTHMA
     Dosage: 300 MG, Q2W
     Route: 058
     Dates: start: 20090903, end: 20100107
  2. FLUTICASONE PROPIONATE/SALMETEROL [Concomitant]
     Indication: DRUG USE FOR UNKNOWN INDICATION
     Dosage: UNK
     Dates: start: 20090129, end: 20090609
  3. QVAR 40 [Concomitant]
     Indication: DRUG USE FOR UNKNOWN INDICATION
     Dosage: UNK
     Dates: start: 20090610
  4. ONON [Concomitant]
     Indication: DRUG USE FOR UNKNOWN INDICATION
     Dosage: UNK
     Dates: start: 20090129
  5. UNIPHYL [Concomitant]
     Indication: DRUG USE FOR UNKNOWN INDICATION
     Dosage: UNK
     Dates: start: 20090129
  6. PREDONINE [Concomitant]
     Indication: DRUG USE FOR UNKNOWN INDICATION
     Dosage: UNK
     Dates: start: 20090310, end: 20090515
  7. MEPTIN [Concomitant]
     Indication: DRUG USE FOR UNKNOWN INDICATION
  8. AMARYL [Concomitant]
     Indication: DRUG USE FOR UNKNOWN INDICATION
  9. DEPAS [Concomitant]
     Indication: DRUG USE FOR UNKNOWN INDICATION
  10. PARIET [Concomitant]
     Indication: DRUG USE FOR UNKNOWN INDICATION
  11. DOGMATYL [Concomitant]
     Indication: DRUG USE FOR UNKNOWN INDICATION
  12. LUVOX [Concomitant]
     Indication: DRUG USE FOR UNKNOWN INDICATION
  13. HALCION [Concomitant]
     Indication: DRUG USE FOR UNKNOWN INDICATION
  14. SENNOSIDE [Concomitant]

REACTIONS (1)
  - MYOCARDIAL INFARCTION [None]
